FAERS Safety Report 5010485-8 (Version None)
Quarter: 2006Q2

REPORT INFORMATION
  Report Type: 
  Country: None (occurrence: None)
  Receive Date: 20060525
  Receipt Date: 20050510
  Transmission Date: 20061013
  Serious: No
  Sender: FDA-Public Use
  Company Number: US-GLAXOSMITHKLINE-A0557953A

PATIENT
  Age: 65 Year
  Sex: Female
  Weight: 136.4 kg

DRUGS (4)
  1. BACTROBAN [Suspect]
     Indication: SKIN INFECTION
     Dosage: 1APP SINGLE DOSE
     Route: 061
     Dates: start: 20050504, end: 20050101
  2. TOPROL-XL [Concomitant]
  3. ONE A DAY VITAMIN [Concomitant]
  4. POTASSIUM [Concomitant]

REACTIONS (5)
  - ERYTHEMA [None]
  - HYPERAESTHESIA [None]
  - PAIN OF SKIN [None]
  - SKIN DISCOLOURATION [None]
  - THERMAL BURN [None]
